FAERS Safety Report 11804581 (Version 1)
Quarter: 2015Q4

REPORT INFORMATION
  Report Type: Spontaneous
  Country: US (occurrence: US)
  Receive Date: 20151204
  Receipt Date: 20151204
  Transmission Date: 20160305
  Serious: No
  Sender: FDA-Public Use
  Company Number: US-TEIKOKU PHARMA USA-TPU2015-00621

PATIENT
  Age: 65 Year
  Sex: Female
  Weight: 53.12 kg

DRUGS (5)
  1. LIDOCAINE PATCH [Suspect]
     Active Substance: LIDOCAINE
     Indication: ARTHRALGIA
     Route: 061
     Dates: start: 201509
  2. OXYCONTIN [Concomitant]
     Active Substance: OXYCODONE HYDROCHLORIDE
     Indication: ARTHRALGIA
     Route: 048
     Dates: start: 201502
  3. HCTZ [Concomitant]
     Active Substance: HYDROCHLOROTHIAZIDE
     Indication: HYPERTENSION
     Route: 048
  4. LIDOCAINE. [Concomitant]
     Active Substance: LIDOCAINE
     Indication: ARTHRALGIA
     Dates: start: 201509, end: 201509
  5. PROLIA [Concomitant]
     Active Substance: DENOSUMAB
     Indication: BONE LOSS

REACTIONS (6)
  - Wrong technique in product usage process [None]
  - Application site erythema [None]
  - Product substitution issue [None]
  - Application site rash [Not Recovered/Not Resolved]
  - Application site irritation [None]
  - Product adhesion issue [None]

NARRATIVE: CASE EVENT DATE: 201509
